FAERS Safety Report 7020418-0 (Version None)
Quarter: 2010Q3

REPORT INFORMATION
  Report Type: 
  Country: None (occurrence: None)
  Receive Date: 20100927
  Receipt Date: 20100916
  Transmission Date: 20110219
  Serious: Yes (Life-Threatening)
  Sender: FDA-Public Use
  Company Number: URSO-2010-089

PATIENT
  Age: 13 Year
  Sex: Female

DRUGS (31)
  1. URSODIOL [Suspect]
     Dosage: ORAL
     Route: 048
  2. REMICADE [Suspect]
     Dosage: 150 MG INTRAVENOUS DRIP
     Route: 041
     Dates: start: 20091008, end: 20091008
  3. REMICADE [Suspect]
     Dosage: 150 MG INTRAVENOUS DRIP
     Route: 041
     Dates: start: 20091022, end: 20091022
  4. REMICADE [Suspect]
     Dosage: 150 MG INTRAVENOUS DRIP
     Route: 041
     Dates: start: 20091203, end: 20091203
  5. IMURAN [Suspect]
     Dosage: 1 MG/KG, 0.5 MG/KG ORAL
     Route: 048
     Dates: start: 20090702, end: 20090813
  6. IMURAN [Suspect]
     Dosage: 1 MG/KG, 0.5 MG/KG ORAL
     Route: 048
     Dates: start: 20090814, end: 20090820
  7. IMURAN [Suspect]
     Dosage: 1 MG/KG, 0.5 MG/KG ORAL
     Route: 048
     Dates: start: 20090821, end: 20091105
  8. PREDNISOLONE [Suspect]
     Indication: CROHN'S DISEASE
     Dosage: 30 MG, 20 MG, 25 MG, 15 MG, 10 MG, 5 MG ORAL
     Route: 048
     Dates: start: 20090702, end: 20090702
  9. PREDNISOLONE [Suspect]
     Indication: CROHN'S DISEASE
     Dosage: 30 MG, 20 MG, 25 MG, 15 MG, 10 MG, 5 MG ORAL
     Route: 048
     Dates: start: 20090717, end: 20090723
  10. PREDNISOLONE [Suspect]
     Indication: CROHN'S DISEASE
     Dosage: 30 MG, 20 MG, 25 MG, 15 MG, 10 MG, 5 MG ORAL
     Route: 048
     Dates: start: 20090724, end: 20090803
  11. PREDNISOLONE [Suspect]
     Indication: CROHN'S DISEASE
     Dosage: 30 MG, 20 MG, 25 MG, 15 MG, 10 MG, 5 MG ORAL
     Route: 048
     Dates: start: 20090804, end: 20090906
  12. PREDNISOLONE [Suspect]
     Indication: CROHN'S DISEASE
     Dosage: 30 MG, 20 MG, 25 MG, 15 MG, 10 MG, 5 MG ORAL
     Route: 048
     Dates: start: 20090907, end: 20090917
  13. PREDNISOLONE [Suspect]
     Indication: CROHN'S DISEASE
     Dosage: 30 MG, 20 MG, 25 MG, 15 MG, 10 MG, 5 MG ORAL
     Route: 048
     Dates: start: 20090918, end: 20091022
  14. PREDNISOLONE [Suspect]
     Indication: CROHN'S DISEASE
     Dosage: 30 MG, 20 MG, 25 MG, 15 MG, 10 MG, 5 MG ORAL
     Route: 048
     Dates: start: 20091023, end: 20091106
  15. PREDNISOLONE [Suspect]
     Indication: CROHN'S DISEASE
     Dosage: 30 MG, 20 MG, 25 MG, 15 MG, 10 MG, 5 MG ORAL
     Route: 048
     Dates: start: 20091110, end: 20091124
  16. PREDNISOLONE [Suspect]
     Indication: CROHN'S DISEASE
     Dosage: 30 MG, 20 MG, 25 MG, 15 MG, 10 MG, 5 MG ORAL
     Route: 048
     Dates: start: 20091125
  17. MESALAMINE [Suspect]
     Dosage: 60MG/KG
     Dates: start: 20090603, end: 20090804
  18. PPI [Concomitant]
  19. ELENTAL (PARENTERAL NUTRITION) [Concomitant]
  20. SOLITAX-H (MAINTENANCE MEDIUM (WITH GLUCOSE)) [Concomitant]
  21. SOLITA-T NO.3-G (MAINTENANCE MEDIUM) [Concomitant]
  22. AMIPAREN (MIXED AMINO ACID PREPARATIONS FOR TOTAL PARENTERAL NUTRIT) [Concomitant]
  23. INTRALIPOS10% (SOYBEAN OIL) [Concomitant]
  24. NOVORAPID (INSULIN ASPART(GENETICAL RECOMBINATION)) [Concomitant]
  25. LEVOTHYROXINE SODIUM [Concomitant]
  26. ASPARA K (L-ASPARTATE POTASSIUM) [Concomitant]
  27. BIO-THREE (CLOSTRIDIUM BUTYRICUM COMBINED DRUG) [Concomitant]
  28. BLOSTAR M (FAMOTIDINE) [Concomitant]
  29. ALFAROL (ALFACALCIDOL) [Concomitant]
  30. COLONEL (POLYCARBOPHIL CALCIUM) [Concomitant]
  31. PENLES (LIDOCAINE) [Concomitant]

REACTIONS (17)
  - ABSCESS INTESTINAL [None]
  - ANOREXIA NERVOSA [None]
  - ASPERGER'S DISORDER [None]
  - CONVULSION [None]
  - CROHN'S DISEASE [None]
  - DEVICE RELATED INFECTION [None]
  - DRUG EFFECT DECREASED [None]
  - GASTRIC ULCER HELICOBACTER [None]
  - GASTRITIS EROSIVE [None]
  - HEPATIC FUNCTION ABNORMAL [None]
  - HYPOPHAGIA [None]
  - HYPOPROTEINAEMIA [None]
  - INFLUENZA [None]
  - RASH [None]
  - THYROID DISORDER [None]
  - TREATMENT NONCOMPLIANCE [None]
  - WEIGHT DECREASED [None]
